FAERS Safety Report 9133130 (Version 1)
Quarter: 2013Q1

REPORT INFORMATION
  Report Type: Spontaneous
  Country: US (occurrence: US)
  Receive Date: 20130301
  Receipt Date: 20130301
  Transmission Date: 20140127
  Serious: Yes (Death, Hospitalization)
  Sender: FDA-Public Use
  Company Number: US-ROCHE-1194548

PATIENT
  Sex: 0

DRUGS (1)
  1. VALIUM [Suspect]
     Indication: PRODUCT USED FOR UNKNOWN INDICATION
     Route: 065

REACTIONS (6)
  - Completed suicide [Fatal]
  - Withdrawal syndrome [Unknown]
  - Loss of employment [Unknown]
  - Reaction to azo-dyes [Unknown]
  - Wrong technique in drug usage process [Unknown]
  - Drug administration error [Unknown]
